FAERS Safety Report 13622885 (Version 1)
Quarter: 2017Q2

REPORT INFORMATION
  Report Type: Report from Study
  Country: None (occurrence: BR)
  Receive Date: 20170607
  Receipt Date: 20170607
  Transmission Date: 20170830
  Serious: Yes (Other)
  Sender: FDA-Public Use
  Company Number: BR-ABBVIE-17K-020-1994572-00

PATIENT
  Sex: Female
  Weight: 83 kg

DRUGS (6)
  1. AZATHIOPRINE. [Concomitant]
     Active Substance: AZATHIOPRINE
     Indication: CROHN^S DISEASE
     Route: 048
     Dates: start: 2011
  2. OMEPRAZOLE. [Concomitant]
     Active Substance: OMEPRAZOLE
     Indication: GALLBLADDER PAIN
  3. HUMIRA [Suspect]
     Active Substance: ADALIMUMAB
     Indication: CROHN^S DISEASE
     Dosage: LOADING DOSE (WEEK 0)
     Route: 058
     Dates: start: 20150105, end: 20150105
  4. OMEPRAZOLE. [Concomitant]
     Active Substance: OMEPRAZOLE
     Indication: GASTRITIS
     Route: 048
     Dates: start: 2015
  5. HUMIRA [Suspect]
     Active Substance: ADALIMUMAB
     Dosage: LOADING DOSE (WEEK 1)
     Route: 058
     Dates: start: 201501, end: 201501
  6. HUMIRA [Suspect]
     Active Substance: ADALIMUMAB
     Route: 058
     Dates: start: 2015

REACTIONS (6)
  - Cholelithiasis [Recovering/Resolving]
  - Umbilical hernia [Not Recovered/Not Resolved]
  - Limb mass [Not Recovered/Not Resolved]
  - Internal hernia [Not Recovered/Not Resolved]
  - Arthralgia [Not Recovered/Not Resolved]
  - Infection [Unknown]
